FAERS Safety Report 6119191-X (Version None)
Quarter: 2009Q1

REPORT INFORMATION
  Report Type: 
  Country: None (occurrence: None)
  Receive Date: 20090311
  Receipt Date: 20090224
  Transmission Date: 20090719
  Serious: Yes (Hospitalization)
  Sender: FDA-Public Use
  Company Number: 2009S1003278

PATIENT
  Age: 56 Year
  Sex: Male

DRUGS (12)
  1. FUROSEMIDE [Suspect]
     Indication: DRUG USE FOR UNKNOWN INDICATION
     Dosage: 40 MG; ORAL
     Route: 048
     Dates: start: 20090113, end: 20090122
  2. RAMIPRIL [Suspect]
     Indication: DRUG USE FOR UNKNOWN INDICATION
     Dosage: 1.25 MG; ORAL
     Route: 048
     Dates: start: 20090113, end: 20090122
  3. AMINOPHYLLINE [Concomitant]
  4. ASPIRIN [Concomitant]
  5. EPILIM [Concomitant]
  6. IPRATROPIUM BROMIDE [Concomitant]
  7. ISMN [Concomitant]
  8. MONTELUKAST [Concomitant]
  9. QUETIAPINE FUMARATE [Concomitant]
  10. SALBUTAMOL [Concomitant]
  11. SERETIDE [Concomitant]
  12. SULPIRIDE [Concomitant]

REACTIONS (1)
  - RENAL FAILURE ACUTE [None]
